FAERS Safety Report 20003863 (Version 1)
Quarter: 2021Q4

REPORT INFORMATION
  Report Type: Spontaneous
  Country: US (occurrence: US)
  Receive Date: 20211028
  Receipt Date: 20211028
  Transmission Date: 20220304
  Serious: No
  Sender: FDA-Public Use
  Company Number: US-DRREDDYS-SPO/USA/21/0142885

PATIENT
  Age: 60 Year
  Sex: Female

DRUGS (1)
  1. ACCUTANE [Suspect]
     Active Substance: ISOTRETINOIN
     Indication: Product used for unknown indication
     Dosage: RMA ISSUE DATE:6 AUGUST 2021 3:05:52 PM,10 SEPTEMBER 2021 2:40:26 PM

REACTIONS (2)
  - Muscle fatigue [Unknown]
  - Myalgia [Unknown]
